FAERS Safety Report 9486182 (Version 1)
Quarter: 2013Q3

REPORT INFORMATION
  Report Type: Spontaneous
  Country: US (occurrence: US)
  Receive Date: 20130829
  Receipt Date: 20130829
  Transmission Date: 20140515
  Serious: No
  Sender: FDA-Public Use
  Company Number: US-GLAXOSMITHKLINE-A1026435A

PATIENT
  Age: 53 Year
  Sex: Female

DRUGS (4)
  1. MALARONE [Suspect]
     Indication: BABESIOSIS
     Route: 048
     Dates: start: 20120319, end: 20120408
  2. MEPRON [Suspect]
     Indication: BABESIOSIS
     Dosage: 750MG TWICE PER DAY
     Route: 048
     Dates: start: 20110822, end: 201110
  3. AZITHROMYCIN [Concomitant]
  4. AMOXICILLIN [Concomitant]

REACTIONS (1)
  - Visual impairment [Recovered/Resolved]
